FAERS Safety Report 14167532 (Version 2)
Quarter: 2017Q4

REPORT INFORMATION
  Report Type: Spontaneous
  Country: US (occurrence: US)
  Receive Date: 20171108
  Receipt Date: 20171229
  Transmission Date: 20180321
  Serious: Yes (Hospitalization, Other)
  Sender: FDA-Public Use
  Company Number: US-APOTEX-2017AP020810

PATIENT
  Age: 7 Year
  Sex: Male

DRUGS (1)
  1. CEFEPIME [Suspect]
     Active Substance: CEFEPIME HYDROCHLORIDE
     Indication: BACTERAEMIA
     Dosage: 400 MG, EVERY 24 HOUR
     Route: 042

REACTIONS (1)
  - Neurotoxicity [Recovered/Resolved]
